FAERS Safety Report 8558905-6 (Version None)
Quarter: 2012Q3

REPORT INFORMATION
  Report Type: 
  Country: None (occurrence: None)
  Receive Date: 20120801
  Receipt Date: 20120726
  Transmission Date: 20120928
  Serious: Yes (Other)
  Sender: FDA-Public Use
  Company Number: US-MSD-1207USA011442

PATIENT

DRUGS (10)
  1. ALLEGRA-D 12 HOUR [Concomitant]
  2. OMEPRAZOLE [Concomitant]
  3. MILK THISTLE [Concomitant]
  4. REBETOL [Suspect]
     Dosage: 1200 MG, QD
  5. PEG-INTRON [Suspect]
     Dosage: 180 MICROGRAM, QD
  6. ZOLPIDEM TARTRATE [Concomitant]
  7. CITALOPRAM HYDROBROMIDE [Concomitant]
  8. VICTRELIS [Suspect]
     Dosage: 200MG,4TABLETS,THREE TIMES A DAY
  9. PEGASYS [Suspect]
     Dosage: 180MCG,ONCE A WEEK
  10. ECHINACEA (UNSPECIFIED) [Concomitant]

REACTIONS (30)
  - DIZZINESS [None]
  - MELAENA [None]
  - HEPATIC STEATOSIS [None]
  - CONTUSION [None]
  - CHANGE OF BOWEL HABIT [None]
  - FATIGUE [None]
  - CHILLS [None]
  - DIARRHOEA [None]
  - IMPAIRED HEALING [None]
  - WHEEZING [None]
  - ASTHENIA [None]
  - ARTHRALGIA [None]
  - LABORATORY TEST ABNORMAL [None]
  - CONSTIPATION [None]
  - HEPATIC FIBROSIS [None]
  - LACERATION [None]
  - HYPERHIDROSIS [None]
  - HEPATOMEGALY [None]
  - RED BLOOD CELL COUNT DECREASED [None]
  - HAEMATOCRIT DECREASED [None]
  - HAEMOGLOBIN DECREASED [None]
  - PYREXIA [None]
  - INSOMNIA [None]
  - NIGHT SWEATS [None]
  - ABDOMINAL PAIN [None]
  - HAEMORRHOIDS [None]
  - WHITE BLOOD CELL COUNT DECREASED [None]
  - INCORRECT DOSE ADMINISTERED [None]
  - JOINT STIFFNESS [None]
  - DYSPNOEA [None]
